FAERS Safety Report 5591425-X (Version None)
Quarter: 2008Q1

REPORT INFORMATION
  Report Type: 
  Country: None (occurrence: None)
  Receive Date: 20080111
  Receipt Date: 20080111
  Transmission Date: 20080703
  Serious: No
  Sender: FDA-Public Use
  Company Number: None

PATIENT
  Age: 67 Year
  Sex: Male
  Weight: 99 kg

DRUGS (1)
  1. CHOLESTYRAMINE [Suspect]
     Indication: HYPERLIPIDAEMIA
     Dosage: 4GM EVERY DAY PO
     Route: 048
     Dates: start: 20071218, end: 20080104

REACTIONS (1)
  - EYE SWELLING [None]
